FAERS Safety Report 9407947 (Version 1)
Quarter: 2013Q3

REPORT INFORMATION
  Report Type: Spontaneous
  Country: US (occurrence: US)
  Receive Date: 20130718
  Receipt Date: 20130718
  Transmission Date: 20140515
  Serious: Yes (Other)
  Sender: FDA-Public Use
  Company Number: US-PFIZER INC-2013208187

PATIENT
  Age: 59 Year
  Sex: Female
  Weight: 63.49 kg

DRUGS (8)
  1. CHANTIX [Suspect]
     Indication: SMOKING CESSATION THERAPY
     Dosage: 0.5 MG, 1X/DAY
     Route: 048
  2. CHANTIX [Interacting]
     Dosage: UNK
     Route: 048
  3. CYMBALTA [Interacting]
     Dosage: 60 MG, 1X/DAY
  4. DIAZEPAM [Concomitant]
     Indication: COMPLEX REGIONAL PAIN SYNDROME
     Dosage: UNK, AS NEEDED
  5. SOMA [Concomitant]
     Indication: MUSCLE SPASMS
     Dosage: UNK, AS NEEDED
  6. OXYCODONE [Concomitant]
     Dosage: UNK, AS NEEDED
  7. TRAZODONE [Concomitant]
     Dosage: UNK
  8. BUSPIRONE [Concomitant]
     Dosage: UNK

REACTIONS (2)
  - Arthropathy [Unknown]
  - Drug interaction [Unknown]
